FAERS Safety Report 9698134 (Version 1)
Quarter: 2013Q4

REPORT INFORMATION
  Report Type: Spontaneous
  Country: US (occurrence: US)
  Receive Date: 20131120
  Receipt Date: 20131120
  Transmission Date: 20140711
  Serious: No
  Sender: FDA-Public Use
  Company Number: US-B.I. PHARMACEUTICALS,INC./RIDGEFIELD-2013-BI-36712BP

PATIENT
  Age: 85 Year
  Sex: Female

DRUGS (8)
  1. TRADJENTA [Suspect]
     Indication: DIABETES MELLITUS
     Dosage: 5 MG
     Route: 048
     Dates: start: 20131025
  2. COUMADIN [Concomitant]
     Indication: CARDIAC DISORDER
     Route: 048
  3. COUMADIN [Concomitant]
     Route: 048
  4. TRILIPIX [Concomitant]
     Indication: BLOOD CHOLESTEROL INCREASED
     Dosage: 135 MG
     Route: 048
  5. CRESTOR [Concomitant]
     Indication: BLOOD CHOLESTEROL INCREASED
     Dosage: 20 MG
     Route: 048
  6. ALLOPURINAL [Concomitant]
     Dosage: 300 MG
     Route: 048
  7. DIAZEM [Concomitant]
     Indication: CARDIAC DISORDER
     Dosage: 120 MG
     Route: 048
  8. PROPANOLOL [Concomitant]
     Indication: CARDIAC DISORDER
     Dosage: 40 MG
     Route: 048

REACTIONS (3)
  - Eye irritation [Unknown]
  - Vision blurred [Not Recovered/Not Resolved]
  - Eye pruritus [Unknown]
